FAERS Safety Report 7667659-7 (Version None)
Quarter: 2011Q3

REPORT INFORMATION
  Report Type: 
  Country: None (occurrence: None)
  Receive Date: 20110806
  Receipt Date: 20110311
  Transmission Date: 20111222
  Serious: No
  Sender: FDA-Public Use
  Company Number: US-ABBOTT-11P-163-0710928-00

PATIENT
  Sex: Female
  Weight: 54.48 kg

DRUGS (2)
  1. CRESTOR [Concomitant]
     Indication: PRODUCT USED FOR UNKNOWN INDICATION
     Dates: start: 20110117
  2. NIASPAN [Suspect]
     Indication: BLOOD CHOLESTEROL INCREASED
     Dates: start: 20101111

REACTIONS (7)
  - BLOOD THYROID STIMULATING HORMONE INCREASED [None]
  - EAR INFECTION [None]
  - GASTROINTESTINAL INFECTION [None]
  - BLOOD CHOLESTEROL INCREASED [None]
  - SINUSITIS [None]
  - ASTHENIA [None]
  - THYROID DISORDER [None]
